FAERS Safety Report 13301814 (Version 3)
Quarter: 2017Q2

REPORT INFORMATION
  Report Type: Spontaneous
  Country: US (occurrence: US)
  Receive Date: 20170307
  Receipt Date: 20170523
  Transmission Date: 20170830
  Serious: No
  Sender: FDA-Public Use
  Company Number: US-PFIZER INC-2017096444

PATIENT
  Age: 56 Year
  Sex: Female

DRUGS (2)
  1. KERYDIN [Suspect]
     Active Substance: TAVABOROLE
     Indication: ONYCHOMYCOSIS
     Dosage: UNK
     Dates: start: 201611
  2. KERYDIN [Suspect]
     Active Substance: TAVABOROLE
     Indication: NAIL DISORDER

REACTIONS (1)
  - Onychoclasis [Recovered/Resolved]
